FAERS Safety Report 9224258 (Version 1)
Quarter: 2013Q2

REPORT INFORMATION
  Report Type: Report from Study
  Country: US (occurrence: US)
  Receive Date: 20130411
  Receipt Date: 20130411
  Transmission Date: 20140414
  Serious: Yes (Hospitalization, Other)
  Sender: FDA-Public Use
  Company Number: US-009507513-1304USA000529

PATIENT
  Age: 39 Year
  Sex: Female

DRUGS (9)
  1. TEMODAR [Suspect]
     Indication: BREAST CANCER
     Dosage: 200 MG/M2, QD ON DAY 1-5 OF 28 DAY CYCLE
     Route: 048
     Dates: start: 20121105
  2. VELIPARIB [Suspect]
     Indication: BREAST CANCER
     Dosage: 40 MG, QD ON DAY 1-7 OF 28 DAY CYCLE
     Route: 048
     Dates: start: 20121105
  3. ATIVAN [Concomitant]
     Indication: ANXIETY
     Dosage: 1 MG, QD
     Route: 048
     Dates: start: 20120915
  4. ADVIL [Concomitant]
     Indication: MUSCULOSKELETAL CHEST PAIN
     Dosage: 200 MG, PRN
     Route: 048
     Dates: start: 20121105
  5. ZOFRAN [Concomitant]
     Indication: PROPHYLAXIS OF NAUSEA AND VOMITING
     Dosage: 1 MG, PRN
     Route: 048
     Dates: start: 20121105
  6. AMITRIPTYLINE HYDROCHLORIDE [Concomitant]
     Indication: PAIN
     Dosage: 75 MG, TID
     Route: 048
     Dates: start: 20121218
  7. AMITRIPTYLINE HYDROCHLORIDE [Concomitant]
     Dosage: QHS (50 MG, QD)
     Route: 048
     Dates: start: 20130109
  8. PHENERGAN (PROMETHAZINE HYDROCHLORIDE) [Concomitant]
     Indication: NAUSEA
     Dosage: 28 MG, PRN
     Route: 048
     Dates: start: 20121108
  9. AZITHROMYCIN [Concomitant]
     Indication: NASAL CONGESTION
     Dosage: AS DIRECTED
     Dates: start: 20130111

REACTIONS (1)
  - Dizziness [Unknown]
